FAERS Safety Report 5740783-1 (Version None)
Quarter: 2008Q2

REPORT INFORMATION
  Report Type: 
  Country: None (occurrence: None)
  Receive Date: 20080515
  Receipt Date: 20080212
  Transmission Date: 20081010
  Serious: No
  Sender: FDA-Public Use
  Company Number: WAES 0802USA03143

PATIENT
  Age: 18 Year
  Sex: Female

DRUGS (2)
  1. TAB ISENTRESS [Suspect]
     Dosage: PO
     Route: 048
  2. ATRIPLA [Concomitant]

REACTIONS (2)
  - ABDOMINAL DISCOMFORT [None]
  - MUSCLE SPASMS [None]
